FAERS Safety Report 10032410 (Version 1)
Quarter: 2014Q1

REPORT INFORMATION
  Report Type: Spontaneous
  Country: CH (occurrence: None)
  Receive Date: 20140320
  Receipt Date: 20140320
  Transmission Date: 20141002
  Serious: Yes (Other)
  Sender: FDA-Public Use
  Company Number: 20140123

PATIENT
  Age: 25 Year
  Sex: Female
  Weight: 54.8 kg

DRUGS (2)
  1. FERINJECT ? [Suspect]
     Indication: IRON DEFICIENCY
     Dates: start: 20140121, end: 20140121
  2. FERINJECT ? [Suspect]
     Indication: GASTRIC DISORDER
     Dates: start: 20140121, end: 20140121

REACTIONS (4)
  - Rash [None]
  - Pruritus [None]
  - Hypotension [None]
  - Anxiety [None]
